FAERS Safety Report 11811460 (Version 1)
Quarter: 2015Q4

REPORT INFORMATION
  Report Type: Spontaneous
  Country: BR (occurrence: BR)
  Receive Date: 20151208
  Receipt Date: 20151208
  Transmission Date: 20160305
  Serious: Yes (Hospitalization, Other)
  Sender: FDA-Public Use
  Company Number: BR-TEVA-614595ISR

PATIENT
  Age: 30 Year
  Sex: Male

DRUGS (3)
  1. FAULDCISPLA [Suspect]
     Active Substance: CISPLATIN
     Indication: TESTIS CANCER
     Route: 042
     Dates: start: 20150622, end: 20150915
  2. BONAR [Suspect]
     Active Substance: BLEOMYCIN SULFATE
     Indication: TESTIS CANCER
     Dosage: 30UI
     Route: 042
     Dates: start: 20150622, end: 20150915
  3. TEVAETOPO [Suspect]
     Active Substance: ETOPOSIDE
     Indication: TESTIS CANCER
     Route: 042
     Dates: start: 20150622, end: 20150915

REACTIONS (4)
  - Febrile neutropenia [Recovered/Resolved]
  - Balanoposthitis [Recovered/Resolved]
  - Fatigue [Recovered/Resolved]
  - Abdominal pain upper [Recovered/Resolved]

NARRATIVE: CASE EVENT DATE: 20150915
